FAERS Safety Report 5062720-8 (Version None)
Quarter: 2006Q3

REPORT INFORMATION
  Report Type: 
  Country: None (occurrence: None)
  Receive Date: 20060725
  Receipt Date: 20060725
  Transmission Date: 20061208
  Serious: No
  Sender: FDA-Public Use
  Company Number: None

PATIENT
  Age: 52 Year
  Sex: Female

DRUGS (1)
  1. NPH INSULIN [Suspect]

REACTIONS (4)
  - AMNESIA [None]
  - DIZZINESS [None]
  - FALL [None]
  - SYNCOPE [None]
